FAERS Safety Report 18705536 (Version 3)
Quarter: 2021Q1

REPORT INFORMATION
  Report Type: Spontaneous
  Country: US (occurrence: US)
  Receive Date: 20210106
  Receipt Date: 20210204
  Transmission Date: 20210419
  Serious: No
  Sender: FDA-Public Use
  Company Number: US-BIOGEN-2021BI00964766

PATIENT
  Sex: Female

DRUGS (4)
  1. VITAMIN D 400 [Concomitant]
     Route: 065
  2. VITAMIN B12 [Concomitant]
     Active Substance: CYANOCOBALAMIN
     Route: 065
  3. TECFIDERA [Suspect]
     Active Substance: DIMETHYL FUMARATE
     Indication: MULTIPLE SCLEROSIS
     Route: 048
     Dates: start: 20200820
  4. TECFIDERA [Suspect]
     Active Substance: DIMETHYL FUMARATE
     Route: 048
     Dates: start: 2018

REACTIONS (5)
  - Musculoskeletal disorder [Unknown]
  - Flushing [Unknown]
  - Confusional state [Unknown]
  - Abdominal discomfort [Unknown]
  - Muscular weakness [Unknown]
